FAERS Safety Report 10602365 (Version 1)
Quarter: 2014Q4

REPORT INFORMATION
  Report Type: Spontaneous
  Country: FR (occurrence: FR)
  Receive Date: 20141124
  Receipt Date: 20141124
  Transmission Date: 20150529
  Serious: Yes (Death, Hospitalization)
  Sender: FDA-Public Use
  Company Number: FR-ELI_LILLY_AND_COMPANY-FR201411007060

PATIENT
  Age: 69 Year
  Sex: Male

DRUGS (11)
  1. ALIMTA [Suspect]
     Active Substance: PEMETREXED DISODIUM
     Indication: LUNG NEOPLASM MALIGNANT
     Dosage: 925 MG, CYCLICAL
     Route: 042
     Dates: start: 201403, end: 201408
  2. NORSET [Concomitant]
     Active Substance: MIRTAZAPINE
     Dosage: 15 MG, UNKNOWN
     Route: 048
  3. CARBOPLATINE [Concomitant]
     Active Substance: CARBOPLATIN
     Dosage: 700 MG, UNK
  4. CARBOPLATINE [Concomitant]
     Active Substance: CARBOPLATIN
     Dosage: 770 MG, UNK
  5. AMLODIPINE [Concomitant]
     Active Substance: AMLODIPINE BESYLATE
     Dosage: 1 DF, QD
     Route: 048
  6. SPECIAFOLDINE [Concomitant]
     Active Substance: FOLIC ACID
     Dosage: 0.4 MG, QD
     Route: 048
  7. CARBOPLATINE [Concomitant]
     Active Substance: CARBOPLATIN
     Indication: LUNG NEOPLASM MALIGNANT
     Dosage: 11050 MG, UNK
     Dates: start: 201403
  8. TRAMADOL [Concomitant]
     Active Substance: TRAMADOL
     Dosage: 200 MG, QD
     Route: 048
  9. AVASTIN [Suspect]
     Active Substance: BEVACIZUMAB
     Indication: LUNG NEOPLASM MALIGNANT
     Dosage: 575 MG, CYCLICAL
     Route: 042
     Dates: start: 201403, end: 20140822
  10. CARBOPLATINE [Concomitant]
     Active Substance: CARBOPLATIN
     Dosage: 730 MG, UNK
     Dates: end: 201405
  11. HYDROCHLOROTHIAZIDE. [Concomitant]
     Active Substance: HYDROCHLOROTHIAZIDE
     Dosage: 1 DF, QD
     Route: 048

REACTIONS (3)
  - Off label use [Unknown]
  - Haemoptysis [Fatal]
  - Laryngeal necrosis [Fatal]

NARRATIVE: CASE EVENT DATE: 20140827
